FAERS Safety Report 4906376-0 (Version None)
Quarter: 2006Q1

REPORT INFORMATION
  Report Type: 
  Country: None (occurrence: None)
  Receive Date: 20060209
  Receipt Date: 20060130
  Transmission Date: 20060701
  Serious: Yes (Death, Life-Threatening, Hospitalization)
  Sender: FDA-Public Use
  Company Number: US-GILEAD-2006-0009169

PATIENT
  Sex: Male
  Weight: 63 kg

DRUGS (38)
  1. VIREAD [Suspect]
     Indication: HIV INFECTION
     Route: 048
     Dates: start: 20051201, end: 20051216
  2. VIREAD [Suspect]
     Route: 048
     Dates: start: 20050412
  3. VIREAD [Suspect]
     Route: 048
     Dates: start: 20050330
  4. VIREAD [Suspect]
     Route: 048
     Dates: start: 20030101
  5. TMC114 [Suspect]
     Indication: HIV INFECTION
     Route: 048
     Dates: start: 20050317, end: 20051216
  6. EMTRICITABINE [Concomitant]
     Indication: HIV INFECTION
     Route: 048
     Dates: start: 20051201, end: 20051216
  7. EMTRICITABINE [Concomitant]
     Route: 048
     Dates: start: 20050412
  8. EMTRICITABINE [Concomitant]
     Route: 048
     Dates: start: 20050330
  9. EMTRICITABINE [Concomitant]
     Route: 048
     Dates: start: 20050101
  10. RITONAVIR [Concomitant]
     Indication: HIV INFECTION
     Route: 048
     Dates: end: 20051216
  11. RITONAVIR [Concomitant]
     Route: 048
     Dates: start: 20050317
  12. RITONAVIR [Concomitant]
     Route: 048
     Dates: start: 20050131
  13. STAVUDINE [Concomitant]
     Indication: HIV INFECTION
     Route: 048
     Dates: start: 20050317, end: 20051101
  14. DAPSONE [Concomitant]
     Indication: ANTIBIOTIC PROPHYLAXIS
     Route: 048
  15. DIFLUCAN [Concomitant]
     Indication: ANTIFUNGAL PROPHYLAXIS
     Route: 048
  16. METFORMIN HYDROCHLORIDE [Concomitant]
     Indication: DIABETES MELLITUS
     Route: 048
  17. GLYBURIDE [Concomitant]
     Indication: DIABETES MELLITUS
     Route: 048
  18. PROTONIX [Concomitant]
     Indication: GASTROOESOPHAGEAL REFLUX DISEASE
     Route: 048
  19. SYNTHROID [Concomitant]
     Indication: HYPOTHYROIDISM
  20. OXYCONTIN [Concomitant]
     Route: 048
  21. HUMULIN N [Concomitant]
     Indication: DIABETES MELLITUS
     Route: 058
  22. HUMULIN R [Concomitant]
     Indication: DIABETES MELLITUS
     Route: 058
  23. ACETAMINOPHEN [Concomitant]
     Indication: HEADACHE
     Route: 048
     Dates: start: 20050410
  24. LISINOPRIL [Concomitant]
     Indication: HYPERTENSION
     Route: 048
     Dates: start: 20050907
  25. LISINOPRIL [Concomitant]
     Route: 048
     Dates: start: 20050725
  26. NEURONTIN [Concomitant]
     Indication: NEUROPATHY PERIPHERAL
     Route: 048
     Dates: start: 20050901
  27. BACTRIM [Concomitant]
     Indication: ANTIBIOTIC PROPHYLAXIS
     Route: 048
     Dates: start: 20050901
  28. CARVEDILOL [Concomitant]
     Indication: ISCHAEMIC HEART DISEASE PROPHYLAXIS
     Route: 048
     Dates: start: 20051012
  29. LANTUS [Concomitant]
     Indication: DIABETES MELLITUS
     Route: 058
     Dates: start: 20050831
  30. REGULAR INSULIN [Concomitant]
     Indication: DIABETES MELLITUS
     Route: 058
     Dates: start: 20050831
  31. NOVOLIN R [Concomitant]
     Route: 058
  32. NOVOLOG [Concomitant]
  33. IMDUR [Concomitant]
     Route: 048
  34. REGLAN [Concomitant]
     Route: 048
  35. ASPIRIN [Concomitant]
     Route: 049
  36. PREVACID [Concomitant]
     Route: 048
  37. ZOCOR [Concomitant]
     Route: 048
  38. AMBIEN [Concomitant]
     Route: 048

REACTIONS (18)
  - CARDIAC FAILURE [None]
  - CHEST PAIN [None]
  - CORONARY ARTERY DISEASE [None]
  - CORONARY ARTERY OCCLUSION [None]
  - COSTOCHONDRITIS [None]
  - ELECTROCARDIOGRAM ST SEGMENT DEPRESSION [None]
  - ELECTROCARDIOGRAM ST SEGMENT ELEVATION [None]
  - GASTROOESOPHAGEAL REFLUX DISEASE [None]
  - HIATUS HERNIA [None]
  - LACTIC ACIDOSIS [None]
  - METABOLIC ACIDOSIS [None]
  - MYOCARDIAL INFARCTION [None]
  - MYOCARDIAL ISCHAEMIA [None]
  - RENAL FAILURE [None]
  - SCAR [None]
  - TRACHEITIS [None]
  - VENTRICULAR DYSFUNCTION [None]
  - VENTRICULAR HYPOKINESIA [None]
